FAERS Safety Report 8510007-0 (Version None)
Quarter: 2012Q2

REPORT INFORMATION
  Report Type: 
  Country: None (occurrence: None)
  Receive Date: 20120405
  Receipt Date: 20090622
  Transmission Date: 20120825
  Serious: Yes (Other)
  Sender: FDA-Public Use
  Company Number: PHEH2009US06576

PATIENT
  Age: 58 Year
  Sex: Female
  Weight: 92.5 kg

DRUGS (17)
  1. POTASSIUM CHLORIDE [Concomitant]
  2. CALCIUM WITH VITAMIN D (CALCIUM PHOSPHATE, CALCIUM SODIUM LACTATE, ERG [Concomitant]
  3. LIOTHYRONINE SODIUM [Concomitant]
  4. ACIDOPHILUS (LACTOBACILLUS ACIDOPHILUS) [Concomitant]
  5. MULTIVITAMINS (ASCORBIC ACID, ERGOCALCIFEROL, FOLIC ACID, NICOTINAMIDE [Concomitant]
  6. LIPITOR [Concomitant]
  7. RECLAST [Suspect]
     Indication: OSTEOPOROSIS
     Dosage: INTRAVENOUS
     Route: 042
     Dates: start: 20090619
  8. LIMBREL (FLAVOCOXID) [Concomitant]
  9. ALDACTONE [Concomitant]
  10. PREMARIN [Concomitant]
  11. ASCORBIC ACID [Concomitant]
  12. FUROSEMIDE (FUROSEMIDE) [Concomitant]
  13. FAMOTIDINE [Concomitant]
  14. PRILOSEC [Concomitant]
  15. CYCLOBENZAPRINE [Concomitant]
  16. ELOCON [Concomitant]
  17. FOLIC ACID [Concomitant]

REACTIONS (7)
  - BLOOD PRESSURE INCREASED [None]
  - FEELING ABNORMAL [None]
  - VOMITING [None]
  - TINNITUS [None]
  - PYREXIA [None]
  - CHILLS [None]
  - SKIN DISCOLOURATION [None]
